FAERS Safety Report 20091249 (Version 1)
Quarter: 2021Q4

REPORT INFORMATION
  Report Type: Spontaneous
  Country: US (occurrence: None)
  Receive Date: 20211119
  Receipt Date: 20211119
  Transmission Date: 20220303
  Serious: No
  Sender: FDA-Public Use
  Company Number: None

PATIENT
  Age: 74 Year
  Sex: Male
  Weight: 131 kg

DRUGS (1)
  1. FLUTICASONE FUROATE\SALMETEROL XINAFOATE [Suspect]
     Active Substance: FLUTICASONE FUROATE\SALMETEROL XINAFOATE
     Indication: Asthma
     Dosage: OTHER QUANTITY : 1 PUFF(S);?FREQUENCY : TWICE A DAY;?OTHER ROUTE : INHALE;?
     Dates: end: 20211110

REACTIONS (2)
  - Dysphonia [None]
  - Dry mouth [None]

NARRATIVE: CASE EVENT DATE: 20211008
